FAERS Safety Report 16943855 (Version 37)
Quarter: 2025Q4

REPORT INFORMATION
  Report Type: Report from Study
  Country: EU (occurrence: EU)
  Receive Date: 20191022
  Receipt Date: 20251208
  Transmission Date: 20260118
  Serious: Yes (Hospitalization, Other)
  Sender: ROCHE
  Company Number: EU-ROCHE-2442808

PATIENT
  Age: 40 Year
  Sex: Male
  Weight: 92.3 kg

DRUGS (31)
  1. OCREVUS [Suspect]
     Active Substance: OCRELIZUMAB
     Indication: Primary progressive multiple sclerosis
     Route: 042
     Dates: start: 20180329
  2. OCREVUS [Suspect]
     Active Substance: OCRELIZUMAB
     Dosage: LAST DOSE RECEIVED ON 10/OCT/2019.
     Route: 042
     Dates: start: 201810
  3. OCREVUS [Suspect]
     Active Substance: OCRELIZUMAB
     Route: 042
     Dates: start: 202004
  4. OCREVUS [Suspect]
     Active Substance: OCRELIZUMAB
     Route: 042
  5. OCREVUS [Suspect]
     Active Substance: OCRELIZUMAB
     Route: 042
  6. OCREVUS [Suspect]
     Active Substance: OCRELIZUMAB
     Route: 042
  7. OCREVUS [Suspect]
     Active Substance: OCRELIZUMAB
     Route: 042
  8. OCREVUS [Suspect]
     Active Substance: OCRELIZUMAB
     Route: 042
  9. OCREVUS [Suspect]
     Active Substance: OCRELIZUMAB
     Route: 042
  10. OCREVUS [Suspect]
     Active Substance: OCRELIZUMAB
     Route: 042
  11. OCREVUS [Suspect]
     Active Substance: OCRELIZUMAB
     Route: 042
  12. OCREVUS [Suspect]
     Active Substance: OCRELIZUMAB
     Route: 042
  13. OCREVUS [Suspect]
     Active Substance: OCRELIZUMAB
     Route: 042
  14. OCREVUS [Suspect]
     Active Substance: OCRELIZUMAB
     Route: 042
  15. OCREVUS [Suspect]
     Active Substance: OCRELIZUMAB
     Route: 042
  16. COMIRNATY (TOZINAMERAN) [Suspect]
     Active Substance: TOZINAMERAN
     Indication: Product used for unknown indication
     Dosage: BOOSTER DOSE GIVEN ON 02/NOV/2021
     Route: 065
  17. COMIRNATY (TOZINAMERAN) [Suspect]
     Active Substance: TOZINAMERAN
     Dosage: BOOSTER DOSE GIVEN ON 02/NOV/2021
     Route: 065
  18. COMIRNATY (TOZINAMERAN) [Suspect]
     Active Substance: TOZINAMERAN
     Dosage: BOOSTER DOSE GIVEN ON 02/NOV/2021
     Route: 065
  19. COMIRNATY (TOZINAMERAN) [Suspect]
     Active Substance: TOZINAMERAN
     Dosage: BOOSTER DOSE GIVEN ON 02/NOV/2021
     Route: 065
  20. MODERNA COVID-19 VACCINE [Suspect]
     Active Substance: ELASOMERAN
     Indication: Product used for unknown indication
     Dosage: LATE JUNE/EARLY JULY/2021 / 30/JUL/2021)
     Route: 065
  21. MODERNA COVID-19 VACCINE [Suspect]
     Active Substance: ELASOMERAN
     Dosage: LATE JUNE/EARLY JULY/2021 / 30/JUL/2021)
     Route: 065
  22. MODERNA COVID-19 VACCINE [Suspect]
     Active Substance: ELASOMERAN
     Dosage: LATE JUNE/EARLY JULY/2021 / 30/JUL/2021)
     Route: 065
  23. MODERNA COVID-19 VACCINE [Suspect]
     Active Substance: ELASOMERAN
     Dosage: LATE JUNE/EARLY JULY/2021 / 30/JUL/2021)
     Route: 065
  24. CARVEDILOL [Concomitant]
     Active Substance: CARVEDILOL
  25. CARVEDILOL [Concomitant]
     Active Substance: CARVEDILOL
  26. CARVEDILOL [Concomitant]
     Active Substance: CARVEDILOL
  27. CARVEDILOL [Concomitant]
     Active Substance: CARVEDILOL
  28. CANDESARTAN [Concomitant]
     Active Substance: CANDESARTAN
  29. VITAMIN D3 [Concomitant]
     Active Substance: CHOLECALCIFEROL
  30. MENAQUINONE 6 [Concomitant]
     Active Substance: MENAQUINONE 6
  31. CARVEDILOL [Concomitant]
     Active Substance: CARVEDILOL

REACTIONS (17)
  - Blood immunoglobulin M decreased [Not Recovered/Not Resolved]
  - Anaphylactic shock [Recovered/Resolved]
  - Weight increased [Not Recovered/Not Resolved]
  - Decreased appetite [Not Recovered/Not Resolved]
  - Depressed mood [Not Recovered/Not Resolved]
  - Irritability [Not Recovered/Not Resolved]
  - Latent tuberculosis [Recovered/Resolved]
  - SARS-CoV-2 antibody test negative [Not Recovered/Not Resolved]
  - Pain in extremity [Recovered/Resolved]
  - Fatigue [Recovered/Resolved]
  - Rash [Recovered/Resolved]
  - Drug ineffective [Not Recovered/Not Resolved]
  - Gait disturbance [Not Recovered/Not Resolved]
  - Cholelithiasis [Recovered/Resolved]
  - Cholecystectomy [Recovered/Resolved]
  - Scar pain [Recovered/Resolved]
  - Rosacea [Recovered/Resolved]

NARRATIVE: CASE EVENT DATE: 20181001
